FAERS Safety Report 13561686 (Version 2)
Quarter: 2017Q3

REPORT INFORMATION
  Report Type: Spontaneous
  Country: US (occurrence: US)
  Receive Date: 20170518
  Receipt Date: 20170804
  Transmission Date: 20171127
  Serious: No
  Sender: FDA-Public Use
  Company Number: US-ACTELION-A-NJ2017-153987

PATIENT
  Age: 56 Year
  Sex: Female

DRUGS (7)
  1. OPSUMIT [Suspect]
     Active Substance: MACITENTAN
     Indication: PULMONARY ARTERIAL HYPERTENSION
     Dosage: 10 MG, QD
     Route: 048
     Dates: start: 20160420, end: 20170512
  2. TRAMADOL. [Concomitant]
     Active Substance: TRAMADOL
  3. ADEMPAS [Concomitant]
     Active Substance: RIOCIGUAT
  4. VORICONAZOLE. [Concomitant]
     Active Substance: VORICONAZOLE
  5. SIMVASTATIN. [Concomitant]
     Active Substance: SIMVASTATIN
  6. ADVAIR HFA [Concomitant]
     Active Substance: FLUTICASONE PROPIONATE\SALMETEROL XINAFOATE
  7. GABAPENTIN. [Concomitant]
     Active Substance: GABAPENTIN

REACTIONS (5)
  - Dry mouth [Unknown]
  - Influenza [Unknown]
  - Nasal congestion [Unknown]
  - Nasal congestion [Unknown]
  - Lip dry [Unknown]

NARRATIVE: CASE EVENT DATE: 2016
